FAERS Safety Report 17834390 (Version 2)
Quarter: 2020Q2

REPORT INFORMATION
  Report Type: Report from Study
  Country: GB (occurrence: GB)
  Receive Date: 20200528
  Receipt Date: 20200601
  Transmission Date: 20200714
  Serious: Yes (Other)
  Sender: FDA-Public Use
  Company Number: GB-GLAXOSMITHKLINE-GB2020EME088508

PATIENT

DRUGS (1)
  1. MEPOLIZUMAB [Suspect]
     Active Substance: MEPOLIZUMAB
     Indication: ASTHMA
     Dosage: 100 MG
     Route: 058
     Dates: start: 201912

REACTIONS (6)
  - Fatigue [Recovering/Resolving]
  - Neck pain [Recovering/Resolving]
  - Pulmonary pain [Recovering/Resolving]
  - COVID-19 [Recovering/Resolving]
  - Musculoskeletal pain [Recovering/Resolving]
  - Headache [Recovering/Resolving]
